FAERS Safety Report 10366147 (Version 1)
Quarter: 2014Q3

REPORT INFORMATION
  Report Type: Spontaneous
  Country: GB (occurrence: None)
  Receive Date: 20140804
  Receipt Date: 20140804
  Transmission Date: 20150326
  Serious: Yes (Other)
  Sender: FDA-Public Use
  Company Number: GB2014K3043SPO

PATIENT
  Sex: Female

DRUGS (1)
  1. LANSOPRAZOLE GENERIC (LANSOPRAZOLE) UNKNOWN [Suspect]
     Active Substance: LANSOPRAZOLE
     Indication: PRODUCT USED FOR UNKNOWN INDICATION
     Dosage: 30 MG, UNK UNKNOWN ROUTE OF ADMINISTRATION
     Dates: start: 2012

REACTIONS (1)
  - Diverticulitis [None]

NARRATIVE: CASE EVENT DATE: 2014
